FAERS Safety Report 15179896 (Version 1)
Quarter: 2018Q3

REPORT INFORMATION
  Report Type: Other
  Country: GB (occurrence: GB)
  Receive Date: 20180723
  Receipt Date: 20180723
  Transmission Date: 20181010
  Serious: Yes (Life-Threatening, Disabling, Other)
  Sender: FDA-Public Use
  Company Number: GB-LUPIN PHARMACEUTICALS INC.-2018-05128

PATIENT
  Age: 12 Year
  Sex: Female
  Weight: 31.75 kg

DRUGS (2)
  1. SERTRALINE [Suspect]
     Active Substance: SERTRALINE HYDROCHLORIDE
     Indication: OBSESSIVE-COMPULSIVE DISORDER
     Dosage: 75 MG, UNK
     Route: 048
     Dates: start: 20170602, end: 201803
  2. SERTRALINE [Suspect]
     Active Substance: SERTRALINE HYDROCHLORIDE
     Dosage: 150 MG, UNK
     Route: 048
     Dates: start: 201803, end: 20180629

REACTIONS (8)
  - Nightmare [Unknown]
  - Throat tightness [Unknown]
  - Dysphagia [Unknown]
  - Suicidal ideation [Not Recovered/Not Resolved]
  - Depression [Not Recovered/Not Resolved]
  - Hallucination, auditory [Unknown]
  - Self-injurious ideation [Unknown]
  - Chronic tic disorder [Unknown]

NARRATIVE: CASE EVENT DATE: 20180305
